FAERS Safety Report 6149571-8 (Version None)
Quarter: 2009Q2

REPORT INFORMATION
  Report Type: 
  Country: None (occurrence: None)
  Receive Date: 20090409
  Receipt Date: 20090331
  Transmission Date: 20091009
  Serious: Yes (Other)
  Sender: FDA-Public Use
  Company Number: PHHY2009BR12619

PATIENT
  Sex: Male
  Weight: 73 kg

DRUGS (3)
  1. CATAFLAM [Suspect]
     Indication: HEADACHE
  2. CATAFLAM [Suspect]
     Indication: OROPHARYNGEAL PAIN
  3. CATAFLAM [Suspect]
     Indication: TOOTH INFECTION

REACTIONS (5)
  - BRAIN NEOPLASM [None]
  - FOOD POISONING [None]
  - HAEMORRHAGE [None]
  - NASAL CONGESTION [None]
  - NASAL NEOPLASM [None]
